FAERS Safety Report 16445848 (Version 4)
Quarter: 2019Q4

REPORT INFORMATION
  Report Type: Spontaneous
  Country: JP (occurrence: JP)
  Receive Date: 20190618
  Receipt Date: 20191105
  Transmission Date: 20200122
  Serious: Yes (Other)
  Sender: FDA-Public Use
  Company Number: JP-PFIZER INC-2019248392

PATIENT
  Age: 9 Month
  Sex: Male
  Weight: 25.4 kg

DRUGS (4)
  1. BENEFIX [Suspect]
     Active Substance: COAGULATION FACTOR IX RECOMBINANT HUMAN\ISOPROPYL ALCOHOL
     Dosage: UNK UNK, 2X/WEEK
     Route: 042
     Dates: start: 20120606
  2. BENEFIX [Suspect]
     Active Substance: COAGULATION FACTOR IX RECOMBINANT HUMAN\ISOPROPYL ALCOHOL
     Indication: FACTOR IX DEFICIENCY
     Dosage: 500 IU, 2X/WEEK
     Route: 042
     Dates: start: 20100414
  3. BENEFIX [Suspect]
     Active Substance: COAGULATION FACTOR IX RECOMBINANT HUMAN\ISOPROPYL ALCOHOL
     Dosage: UNK UNK, 2X/WEEK
     Route: 042
     Dates: start: 20111216
  4. BENEFIX [Suspect]
     Active Substance: COAGULATION FACTOR IX RECOMBINANT HUMAN\ISOPROPYL ALCOHOL
     Dosage: UNK UNK, 2X/WEEK
     Route: 042
     Dates: start: 20111216

REACTIONS (4)
  - Haemarthrosis [Recovered/Resolved]
  - Drug ineffective [Unknown]
  - Face oedema [Unknown]
  - Arthritis [Unknown]

NARRATIVE: CASE EVENT DATE: 20111216
